FAERS Safety Report 7928996-1 (Version None)
Quarter: 2011Q4

REPORT INFORMATION
  Report Type: 
  Country: None (occurrence: None)
  Receive Date: 20111118
  Receipt Date: 20111110
  Transmission Date: 20120403
  Serious: Yes (Death, Hospitalization)
  Sender: FDA-Public Use
  Company Number: US-MPIJNJ-2011-04248

PATIENT
  Sex: Male
  Weight: 105.67 kg

DRUGS (1)
  1. VELCADE [Suspect]
     Indication: MULTIPLE MYELOMA
     Dosage: 2.6 MG, 1/WEEK
     Route: 042
     Dates: start: 20110609, end: 20110721

REACTIONS (4)
  - MULTIPLE MYELOMA [None]
  - HAEMATURIA [None]
  - DEHYDRATION [None]
  - HYPOTENSION [None]
